FAERS Safety Report 4713431-7 (Version None)
Quarter: 2005Q3

REPORT INFORMATION
  Report Type: 
  Country: None (occurrence: None)
  Receive Date: 20050711
  Receipt Date: 20050629
  Transmission Date: 20060218
  Serious: Yes (Other)
  Sender: FDA-Public Use
  Company Number: 2005-129995-NL

PATIENT
  Age: 36 Year
  Sex: Female
  Weight: 96.2 kg

DRUGS (12)
  1. NUVARING [Suspect]
     Indication: CONTRACEPTION
     Dosage: VAGINAL, 21 DAYS IN/7 DAYS OUT
     Route: 067
     Dates: start: 20050316, end: 20050510
  2. NUVARING [Suspect]
     Indication: CONTRACEPTION
     Dosage: VAGINAL, CONTINUOUS USE PLANNED FOR 7-8 DAYS
     Route: 067
     Dates: start: 20050510, end: 20050619
  3. BACTRIM [Concomitant]
  4. AVANDIA [Concomitant]
  5. WELLBUTRIN SR [Concomitant]
  6. TRAZADONE [Concomitant]
  7. TYLENOL [Concomitant]
  8. MULTIVITAMIN, COMPLETE CALCIUM CITRATE [Concomitant]
  9. VITAMIN B-12 [Concomitant]
  10. FISH OIL [Concomitant]
  11. DOCUSATE SODIUM [Concomitant]
  12. OCUVITE [Concomitant]

REACTIONS (14)
  - ABDOMINAL HERNIA [None]
  - ABDOMINAL PAIN [None]
  - ABDOMINAL PAIN UPPER [None]
  - ABORTION SPONTANEOUS INCOMPLETE [None]
  - CHEST PAIN [None]
  - CONTUSION [None]
  - FIBRIN D DIMER INCREASED [None]
  - INTRA-UTERINE CONTRACEPTIVE DEVICE EXPELLED [None]
  - MEDICAL DEVICE COMPLICATION [None]
  - MENORRHAGIA [None]
  - OVARIAN CYST [None]
  - PREGNANCY WITH CONTRACEPTIVE DEVICE [None]
  - URINARY TRACT INFECTION [None]
  - VAGINAL HAEMORRHAGE [None]
